FAERS Safety Report 4981544-0 (Version None)
Quarter: 2006Q2

REPORT INFORMATION
  Report Type: 
  Country: None (occurrence: None)
  Receive Date: 20060419
  Receipt Date: 20060329
  Transmission Date: 20061013
  Serious: Yes (Death, Hospitalization)
  Sender: FDA-Public Use
  Company Number: US200603007123

PATIENT
  Age: 64 Year
  Sex: Male

DRUGS (2)
  1. FORTEO [Suspect]
     Indication: OSTEOPOROSIS
     Dosage: 20 UG,
  2. FORTEO [Concomitant]

REACTIONS (2)
  - ANAESTHETIC COMPLICATION [None]
  - HIP FRACTURE [None]
